FAERS Safety Report 4432055-2 (Version None)
Quarter: 2004Q3

REPORT INFORMATION
  Report Type: 
  Country: None (occurrence: None)
  Receive Date: 20040825
  Receipt Date: 20040816
  Transmission Date: 20050211
  Serious: Yes (Other)
  Sender: FDA-Public Use
  Company Number: FR-BRISTOL-MYERS SQUIBB COMPANY-12675963

PATIENT
  Age: 47 Year
  Sex: Male

DRUGS (2)
  1. CETUXIMAB [Suspect]
     Indication: COLORECTAL CANCER METASTATIC
     Dosage: PT HAD REC'D ONLY ONE DOSE PRIOR TO EVENT.
     Route: 042
     Dates: start: 20040601, end: 20040806
  2. IRINOTECAN [Suspect]
     Indication: COLORECTAL CANCER METASTATIC
     Dosage: PT HAD REC'D ONLY ONE DOSE PRIOR TO EVENT.
     Route: 042
     Dates: start: 20040601, end: 20040730

REACTIONS (1)
  - CORNEAL ULCER [None]
